FAERS Safety Report 6555382-1 (Version None)
Quarter: 2010Q1

REPORT INFORMATION
  Report Type: 
  Country: None (occurrence: None)
  Receive Date: 20100128
  Receipt Date: 20090824
  Transmission Date: 20100710
  Serious: No
  Sender: FDA-Public Use
  Company Number: A0803783A

PATIENT
  Age: 61 Year
  Sex: Female

DRUGS (17)
  1. WELLBUTRIN [Suspect]
     Dosage: 100MG THREE TIMES PER DAY
     Route: 048
  2. WELLBUTRIN XL [Suspect]
     Dosage: 300MG PER DAY
     Route: 048
     Dates: start: 20090601
  3. METFORMIN HCL [Concomitant]
  4. THYROID MEDICATION [Concomitant]
  5. ESTROPIPATE [Concomitant]
  6. NEURONTIN [Concomitant]
  7. KLONOPIN [Concomitant]
  8. MICRO-K [Concomitant]
  9. SINGULAIR [Concomitant]
  10. BENICAR [Concomitant]
  11. VYTORIN [Concomitant]
  12. PRILOSEC [Concomitant]
  13. CLONIDINE [Concomitant]
  14. JANUVIA [Concomitant]
  15. ASPIRIN [Concomitant]
  16. ADVAIR HFA [Concomitant]
  17. MAXAIR [Concomitant]

REACTIONS (4)
  - DRUG INEFFECTIVE [None]
  - HEADACHE [None]
  - INSOMNIA [None]
  - TENSION [None]
